FAERS Safety Report 11255244 (Version 1)
Quarter: 2015Q3

REPORT INFORMATION
  Report Type: Spontaneous
  Country: US (occurrence: US)
  Receive Date: 20150709
  Receipt Date: 20150709
  Transmission Date: 20151125
  Serious: No
  Sender: FDA-Public Use
  Company Number: US-SA-2015SA030232

PATIENT
  Sex: Male

DRUGS (4)
  1. FLEXPEN [Suspect]
     Active Substance: UNSPECIFIED INGREDIENT
     Route: 065
  2. METFORMIN [Suspect]
     Active Substance: METFORMIN HYDROCHLORIDE
     Route: 065
  3. NOVOLOG [Suspect]
     Active Substance: INSULIN ASPART
     Route: 065
  4. AMARYL [Suspect]
     Active Substance: GLIMEPIRIDE
     Route: 065

REACTIONS (1)
  - Dyspepsia [Unknown]
